FAERS Safety Report 6436364-7 (Version None)
Quarter: 2009Q4

REPORT INFORMATION
  Report Type: 
  Country: None (occurrence: None)
  Receive Date: 20091111
  Receipt Date: 20091028
  Transmission Date: 20100525
  Serious: Yes (Other)
  Sender: FDA-Public Use
  Company Number: PHEH2009US14610

PATIENT
  Age: 56 Year
  Sex: Female

DRUGS (3)
  1. RECLAST [Suspect]
     Indication: OSTEOPOROSIS
  2. CALCIUM W/VITAMIN D NOS [Concomitant]
     Dosage: 1200MG/800IU
     Route: 048
  3. DRISDOL [Concomitant]
     Dosage: 50,000 BID

REACTIONS (2)
  - ARRHYTHMIA [None]
  - HYPOCALCAEMIA [None]
